FAERS Safety Report 7565373-X (Version None)
Quarter: 2011Q2

REPORT INFORMATION
  Report Type: 
  Country: None (occurrence: None)
  Receive Date: 20110623
  Receipt Date: 20110613
  Transmission Date: 20111010
  Serious: No
  Sender: FDA-Public Use
  Company Number: US-BIOGENIDEC-2011BI006491

PATIENT
  Sex: Female

DRUGS (3)
  1. TYSABRI [Suspect]
     Indication: MULTIPLE SCLEROSIS
     Route: 042
     Dates: start: 20101014
  2. GABAPENTIN [Concomitant]
     Indication: PAIN IN EXTREMITY
  3. LYRICA [Concomitant]
     Indication: PAIN IN EXTREMITY

REACTIONS (6)
  - PAIN [None]
  - MENOPAUSE [None]
  - PAIN IN EXTREMITY [None]
  - MULTIPLE SCLEROSIS RELAPSE [None]
  - GAIT DISTURBANCE [None]
  - ARTHRALGIA [None]
